FAERS Safety Report 5734917-2 (Version None)
Quarter: 2008Q2

REPORT INFORMATION
  Report Type: 
  Country: None (occurrence: None)
  Receive Date: 20080512
  Receipt Date: 20080512
  Transmission Date: 20081010
  Serious: Yes (Death)
  Sender: FDA-Public Use
  Company Number: None

PATIENT
  Age: 76 Year
  Sex: Male
  Weight: 95.2554 kg

DRUGS (1)
  1. HEPARIN [Suspect]

REACTIONS (7)
  - BLOOD DISORDER [None]
  - DIARRHOEA [None]
  - GENERAL PHYSICAL HEALTH DETERIORATION [None]
  - HYPOTENSION [None]
  - INFECTION [None]
  - SEPSIS [None]
  - VOMITING [None]
